FAERS Safety Report 10007350 (Version 1)
Quarter: 2014Q1

REPORT INFORMATION
  Report Type: Spontaneous
  Country: US (occurrence: US)
  Receive Date: 20140313
  Receipt Date: 20140313
  Transmission Date: 20141002
  Serious: Yes (Other)
  Sender: FDA-Public Use
  Company Number: US-GLAXOSMITHKLINE-A1064512A

PATIENT
  Sex: Female

DRUGS (3)
  1. WELLBUTRIN XL [Suspect]
     Indication: PRODUCT USED FOR UNKNOWN INDICATION
     Dosage: 450MG UNKNOWN
     Route: 065
  2. FORFIVO XL [Suspect]
     Indication: PRODUCT USED FOR UNKNOWN INDICATION
     Dosage: 450MG UNKNOWN
     Route: 065
  3. BUPROPION SR [Concomitant]
     Dosage: 150MG TWICE PER DAY

REACTIONS (2)
  - Anaphylactoid reaction [Unknown]
  - Drug dispensing error [Unknown]
